FAERS Safety Report 8011743-5 (Version None)
Quarter: 2011Q4

REPORT INFORMATION
  Report Type: 
  Country: None (occurrence: None)
  Receive Date: 20111228
  Receipt Date: 20111215
  Transmission Date: 20120403
  Serious: Yes (Other)
  Sender: FDA-Public Use
  Company Number: US-PFIZER INC-2011309020

PATIENT
  Age: 74 Year
  Sex: Female

DRUGS (2)
  1. IBUPROFEN [Suspect]
     Indication: ARTHRITIS
     Dosage: 800 MG , UNK
     Route: 065
  2. DIOVAN [Concomitant]
     Route: 065
     Dates: start: 20090101

REACTIONS (1)
  - GASTRIC HAEMORRHAGE [None]
